FAERS Safety Report 14624511 (Version 1)
Quarter: 2018Q1

REPORT INFORMATION
  Report Type: Spontaneous
  Country: US (occurrence: US)
  Receive Date: 20180310
  Receipt Date: 20180310
  Transmission Date: 20180509
  Serious: Yes (Other)
  Sender: FDA-Public Use
  Company Number: None

PATIENT
  Age: 93 Year
  Sex: Female
  Weight: 50.85 kg

DRUGS (5)
  1. VITAMIN D [Concomitant]
     Active Substance: CHOLECALCIFEROL
  2. PREDNISONE. [Suspect]
     Active Substance: PREDNISONE
     Indication: COUGH
     Route: 048
     Dates: start: 20161016, end: 20161022
  3. BIOTIN [Concomitant]
     Active Substance: BIOTIN
  4. COQ10 [Concomitant]
     Active Substance: UBIDECARENONE
  5. B VITAMINS [Concomitant]
     Active Substance: CYANOCOBALAMIN\DEXPANTHENOL\NIACINAMIDE\PYRIDOXINE HYDROCHLORIDE\RIBOFLAVIN 5^-PHOSPHATE SODIUM\THIAMINE HYDROCHLORIDE\VITAMIN B COMPLEX

REACTIONS (6)
  - Rheumatoid arthritis [None]
  - Dyspnoea [None]
  - Abdominal distension [None]
  - Gait disturbance [None]
  - Chest discomfort [None]
  - Gastroenteritis [None]

NARRATIVE: CASE EVENT DATE: 20161016
